FAERS Safety Report 9488247 (Version 3)
Quarter: 2016Q1

REPORT INFORMATION
  Report Type: Report from Study
  Country: DE (occurrence: DE)
  Receive Date: 20130829
  Receipt Date: 20160321
  Transmission Date: 20160526
  Serious: Yes (Hospitalization)
  Sender: FDA-Public Use
  Company Number: DE-ROCHE-1265789

PATIENT
  Age: 53 Year
  Sex: Female
  Weight: 88 kg

DRUGS (9)
  1. BEVACIZUMAB [Suspect]
     Active Substance: BEVACIZUMAB
     Indication: COLORECTAL CANCER METASTATIC
     Dosage: DATE OF LAST ADMINISTRATION PRIOR TO SAE: 18/FEB/2013 WITH DOSE 7.5 MG/KG
     Route: 042
     Dates: start: 20120314, end: 20130308
  2. BEVACIZUMAB [Suspect]
     Active Substance: BEVACIZUMAB
     Route: 042
     Dates: start: 20130327
  3. CAPECITABINE. [Suspect]
     Active Substance: CAPECITABINE
     Indication: COLORECTAL CANCER METASTATIC
     Dosage: DATE OF LAST ADMINISTRATION RIOR TO SAE: 18/FEB/2013 WITH DOSE 1600 MG/M2
     Route: 048
     Dates: start: 20121217, end: 20130308
  4. OXALIPLATIN. [Suspect]
     Active Substance: OXALIPLATIN
     Indication: COLORECTAL CANCER METASTATIC
     Dosage: DATE OF LAST ADMINISTRATION RIOR TO SAE: 04/OCT/2012 T 85MG/M2
     Route: 042
     Dates: start: 20120314
  5. FLUOROURACIL. [Suspect]
     Active Substance: FLUOROURACIL
     Indication: COLORECTAL CANCER METASTATIC
     Dosage: DATE OF LAST ADMINISTRATION PRIOR TO SAE: 22/10/2012 WITH DOSE 3200 MG/M2
     Route: 042
     Dates: start: 20120314
  6. CAPECITABINE. [Suspect]
     Active Substance: CAPECITABINE
     Route: 048
     Dates: start: 20130327
  7. SIOFOR [Concomitant]
     Active Substance: METFORMIN HYDROCHLORIDE
     Indication: TYPE 2 DIABETES MELLITUS
     Dosage: 2-0-1
     Route: 048
  8. L-THYROX [Concomitant]
     Active Substance: LEVOTHYROXINE SODIUM
     Indication: HYPOTHYROIDISM
     Dosage: 2X1/2 DAILY
     Route: 048
  9. FOLINIC ACID [Suspect]
     Active Substance: LEUCOVORIN
     Indication: COLORECTAL CANCER METASTATIC
     Dosage: LEUCOVORIN: DATE OF LAST ADMINISTRATION RIOR TO SAE: 22/OCT/2012 WITH DOSE 200 MG/M2
     Route: 042
     Dates: start: 20120314

REACTIONS (2)
  - Body temperature increased [Recovered/Resolved]
  - Pneumonia [Recovered/Resolved]

NARRATIVE: CASE EVENT DATE: 20130308
